FAERS Safety Report 10218393 (Version 2)
Quarter: 2014Q2

REPORT INFORMATION
  Report Type: Spontaneous
  Country: JP (occurrence: JP)
  Receive Date: 20140605
  Receipt Date: 20140616
  Transmission Date: 20141212
  Serious: Yes (Other)
  Sender: FDA-Public Use
  Company Number: JP-ROCHE-1412419

PATIENT
  Age: 65 Year
  Sex: Male

DRUGS (3)
  1. HERCEPTIN [Suspect]
     Indication: HER-2 POSITIVE GASTRIC CANCER
     Dosage: LAST DOSE PRIOR TO SERIOUS ADVERSE EVENT: //2014
     Route: 041
     Dates: start: 20140313
  2. XELODA [Suspect]
     Indication: HER-2 POSITIVE GASTRIC CANCER
     Dosage: /THE 14TH?LAST DOSE PRIOR TO SERIOUS ADVERSE EVENT: //2014
     Route: 048
     Dates: start: 20140313
  3. CISPLATIN [Concomitant]
     Indication: HER-2 POSITIVE GASTRIC CANCER
     Route: 041
     Dates: start: 20140313, end: 2014

REACTIONS (1)
  - Interstitial lung disease [Not Recovered/Not Resolved]
